FAERS Safety Report 8175925-4 (Version None)
Quarter: 2012Q1

REPORT INFORMATION
  Report Type: 
  Country: None (occurrence: None)
  Receive Date: 20120228
  Receipt Date: 20120220
  Transmission Date: 20120608
  Serious: Yes (Other)
  Sender: FDA-Public Use
  Company Number: 2012000028

PATIENT
  Age: 57 Year
  Sex: Male

DRUGS (7)
  1. ACEON [Suspect]
     Indication: PRODUCT USED FOR UNKNOWN INDICATION
     Dosage: 5 MG, QD, ORAL
     Route: 048
     Dates: start: 20120122, end: 20120201
  2. ACEON [Suspect]
     Indication: PRODUCT USED FOR UNKNOWN INDICATION
     Dosage: 5 MG, QD, ORAL
     Route: 048
     Dates: end: 20110101
  3. SUBUTEX [Concomitant]
  4. NEXIUM [Concomitant]
  5. PLAVIX [Suspect]
     Indication: PRODUCT USED FOR UNKNOWN INDICATION
     Dosage: 75 MG, QD, ORAL, 75 MG, QD
     Route: 048
     Dates: start: 20120123, end: 20120201
  6. ASPIRIN [Concomitant]
  7. ROHYPNOL (FLUNITRAZEPAM) [Concomitant]

REACTIONS (2)
  - PRURITUS [None]
  - SKIN ULCER [None]
